FAERS Safety Report 11217661 (Version 1)
Quarter: 2015Q2

REPORT INFORMATION
  Report Type: Spontaneous
  Country: US (occurrence: None)
  Receive Date: 20150624
  Receipt Date: 20150624
  Transmission Date: 20150821
  Serious: Yes (Hospitalization)
  Sender: FDA-Public Use
  Company Number: None

PATIENT
  Age: 63 Year
  Sex: Male

DRUGS (14)
  1. CALCIUM-VITAMIN D [Concomitant]
  2. FUROSEMIDE. [Concomitant]
     Active Substance: FUROSEMIDE
  3. METOPROLOL TARTRATE. [Concomitant]
     Active Substance: METOPROLOL TARTRATE
  4. MULTIVITAMIN [Concomitant]
     Active Substance: VITAMINS
  5. URSODIOL. [Concomitant]
     Active Substance: URSODIOL
  6. TAMSULOSIN [Concomitant]
     Active Substance: TAMSULOSIN
  7. RIBAVIRIN 600MG [Suspect]
     Active Substance: RIBAVIRIN
     Route: 048
     Dates: start: 20150223, end: 20150518
  8. TACROLIMUS. [Concomitant]
     Active Substance: TACROLIMUS
  9. NOVOLOG [Concomitant]
     Active Substance: INSULIN ASPART
  10. HYDROXYZINE PAMOATE. [Concomitant]
     Active Substance: HYDROXYZINE PAMOATE
  11. LANTUS [Concomitant]
     Active Substance: INSULIN GLARGINE
  12. VITAMIN B COMPLEX [Concomitant]
     Active Substance: CYANOCOBALAMIN\DEXPANTHENOL\NIACINAMIDE\PYRIDOXINE HYDROCHLORIDE\RIBOFLAVIN 5^-PHOSPHATE SODIUM\THIAMINE HYDROCHLORIDE\VITAMIN B COMPLEX
  13. HARVONI [Suspect]
     Active Substance: LEDIPASVIR\SOFOSBUVIR
     Indication: HEPATITIS C
     Route: 048
     Dates: start: 20150223, end: 20150518
  14. OMEPRAZOLE. [Concomitant]
     Active Substance: OMEPRAZOLE

REACTIONS (2)
  - Hyperglycaemia [None]
  - Renal failure [None]

NARRATIVE: CASE EVENT DATE: 20150306
